FAERS Safety Report 5112886-6 (Version None)
Quarter: 2006Q3

REPORT INFORMATION
  Report Type: 
  Country: None (occurrence: None)
  Receive Date: 20060922
  Receipt Date: 20030529
  Transmission Date: 20061208
  Serious: Yes (Other)
  Sender: FDA-Public Use
  Company Number: US-ROCHE-339128

PATIENT
  Age: 20 Year
  Sex: Female

DRUGS (3)
  1. ACCUTANE [Suspect]
     Route: 048
     Dates: start: 20030419, end: 20030515
  2. ORAL CONTRACEPTIVE PILL [Concomitant]
     Indication: CONTRACEPTION
     Route: 048
  3. ZOLOFT [Concomitant]
     Indication: DEPRESSION
     Route: 048

REACTIONS (7)
  - ABORTION INDUCED [None]
  - DIZZINESS [None]
  - DRUG EXPOSURE DURING PREGNANCY [None]
  - NAUSEA [None]
  - NO ADVERSE EFFECT [None]
  - PREGNANCY [None]
  - SINUSITIS [None]
